FAERS Safety Report 23066707 (Version 1)
Quarter: 2023Q4

REPORT INFORMATION
  Report Type: Spontaneous
  Country: JP (occurrence: JP)
  Receive Date: 20231016
  Receipt Date: 20231016
  Transmission Date: 20240110
  Serious: Yes (Death, Other)
  Sender: FDA-Public Use
  Company Number: JP-ROCHE-3434746

PATIENT
  Age: 8 Decade
  Sex: Male

DRUGS (3)
  1. CAPECITABINE [Suspect]
     Active Substance: CAPECITABINE
     Route: 048
  2. AVASTIN [Suspect]
     Active Substance: BEVACIZUMAB
     Indication: Colon cancer
  3. OXALIPLATIN [Concomitant]
     Active Substance: OXALIPLATIN

REACTIONS (6)
  - Nephrotic syndrome [Fatal]
  - Febrile neutropenia [Fatal]
  - Pneumonia [Fatal]
  - Blood pressure decreased [Fatal]
  - Depressed level of consciousness [Fatal]
  - Henoch-Schonlein purpura [Unknown]
